FAERS Safety Report 16594310 (Version 1)
Quarter: 2019Q3

REPORT INFORMATION
  Report Type: Spontaneous
  Country: DE (occurrence: DE)
  Receive Date: 20190718
  Receipt Date: 20190718
  Transmission Date: 20191004
  Serious: Yes (Hospitalization)
  Sender: FDA-Public Use
  Company Number: DE-TEVA-2019-DE-1078101

PATIENT
  Age: 32 Year
  Sex: Male

DRUGS (6)
  1. PANTOPRAZOL [Concomitant]
     Active Substance: PANTOPRAZOLE SODIUM
     Dosage: 40 MG, 0-0-1-0
  2. IRINOTECAN [Suspect]
     Active Substance: IRINOTECAN
     Dosage: 360 MG, NK; ONGOING CHEMO
  3. ALLOPURINOL. [Concomitant]
     Active Substance: ALLOPURINOL
     Dosage: NK MG, 1-0-0-0
  4. OXALIPLATIN. [Suspect]
     Active Substance: OXALIPLATIN
     Dosage: 180 MG, NK; ONGOING CHEMO
  5. FLUOROURACIL. [Suspect]
     Active Substance: FLUOROURACIL
     Dosage: 7000 MG, NK; ONGOING CHEMO
  6. LEVOLEUCOVORIN. [Suspect]
     Active Substance: LEVOLEUCOVORIN
     Dosage: 450 MG, NK; ONGOING CHEMO

REACTIONS (3)
  - Abdominal pain [Unknown]
  - Abdominal pain lower [Unknown]
  - Vomiting [Unknown]
